FAERS Safety Report 4732410-7 (Version None)
Quarter: 2005Q3

REPORT INFORMATION
  Report Type: 
  Country: None (occurrence: None)
  Receive Date: 20050801
  Receipt Date: 20050715
  Transmission Date: 20060218
  Serious: Yes (Other)
  Sender: FDA-Public Use
  Company Number: 8011162

PATIENT

DRUGS (3)
  1. KEPPRA [Suspect]
     Indication: MYOCLONIC EPILEPSY
     Dosage: PO
     Route: 048
     Dates: start: 20020101
  2. DEPAKOTE [Suspect]
     Indication: MYOCLONIC EPILEPSY
  3. LAMICTAL [Suspect]
     Indication: MYOCLONIC EPILEPSY

REACTIONS (3)
  - HEART RATE DECREASED [None]
  - LOSS OF CONSCIOUSNESS [None]
  - SYNCOPE [None]
